FAERS Safety Report 15779078 (Version 25)
Quarter: 2023Q4

REPORT INFORMATION
  Report Type: Report from Study
  Country: CA (occurrence: CA)
  Receive Date: 20190101
  Receipt Date: 20231022
  Transmission Date: 20240110
  Serious: Yes (Hospitalization, Other)
  Sender: FDA-Public Use
  Company Number: PHHY2018CA105168

PATIENT
  Sex: Male

DRUGS (18)
  1. SANDOSTATIN [Suspect]
     Active Substance: OCTREOTIDE ACETATE
     Indication: Neuroendocrine tumour
     Dosage: UNK
     Route: 058
     Dates: start: 201409
  2. SANDOSTATIN [Suspect]
     Active Substance: OCTREOTIDE ACETATE
     Dosage: 40 MG, QMO
     Route: 058
     Dates: start: 20200224
  3. SANDOSTATIN [Suspect]
     Active Substance: OCTREOTIDE ACETATE
  4. SANDOSTATIN LAR DEPOT [Suspect]
     Active Substance: OCTREOTIDE ACETATE
     Indication: Neuroendocrine tumour
     Dosage: 40 MG, QMO
     Route: 030
     Dates: start: 20110602
  5. SANDOSTATIN LAR DEPOT [Suspect]
     Active Substance: OCTREOTIDE ACETATE
     Dosage: UNK
     Route: 065
     Dates: start: 2023
  6. CYMBALTA [Concomitant]
     Active Substance: DULOXETINE HYDROCHLORIDE
     Indication: Product used for unknown indication
     Dosage: UNK
     Route: 065
  7. CANDESARTAN [Concomitant]
     Active Substance: CANDESARTAN
     Indication: Product used for unknown indication
     Dosage: UNK
     Route: 065
  8. POLYETHYLENE GLYCOLS [Concomitant]
     Active Substance: POLYETHYLENE GLYCOLS
     Indication: Product used for unknown indication
     Dosage: UNK
     Route: 065
  9. PANTOPRAZOLE SODIUM [Concomitant]
     Active Substance: PANTOPRAZOLE SODIUM
     Indication: Product used for unknown indication
     Dosage: UNK
     Route: 065
  10. INSULIN NOS [Concomitant]
     Active Substance: INSULIN NOS
     Indication: Product used for unknown indication
     Dosage: UNK
     Route: 065
     Dates: start: 2020
  11. PANTOPRAZOLE [Concomitant]
     Active Substance: PANTOPRAZOLE
     Indication: Product used for unknown indication
     Dosage: 40 MG
     Route: 048
  12. LINAGLIPTIN [Concomitant]
     Active Substance: LINAGLIPTIN
     Indication: Product used for unknown indication
     Dosage: 5 MG
     Route: 048
  13. PREGABALIN [Concomitant]
     Active Substance: PREGABALIN
     Indication: Product used for unknown indication
     Dosage: 25 MG
     Route: 048
  14. CIPROFLOXACIN [Concomitant]
     Active Substance: CIPROFLOXACIN
     Indication: Product used for unknown indication
     Dosage: UNK
     Route: 065
  15. ATIVAN [Concomitant]
     Active Substance: LORAZEPAM
     Indication: Product used for unknown indication
     Dosage: UNK
     Route: 065
  16. MINT DULOXETINE [Concomitant]
     Indication: Product used for unknown indication
     Dosage: UNK
     Route: 065
  17. LYRICA [Concomitant]
     Active Substance: PREGABALIN
     Indication: Product used for unknown indication
     Dosage: UNK
     Route: 065
  18. KETOROLAC [Concomitant]
     Active Substance: KETOROLAC TROMETHAMINE
     Indication: Product used for unknown indication
     Dosage: UNK
     Route: 065

REACTIONS (25)
  - Blood pressure increased [Unknown]
  - Pelvic pain [Unknown]
  - Loss of consciousness [Unknown]
  - Asthenia [Unknown]
  - Dizziness [Unknown]
  - Nausea [Unknown]
  - Malaise [Unknown]
  - Diabetes mellitus [Unknown]
  - Nasopharyngitis [Unknown]
  - Oropharyngeal pain [Unknown]
  - Stress [Unknown]
  - Pain [Unknown]
  - Back pain [Unknown]
  - Blood pressure systolic increased [Unknown]
  - Blood pressure diastolic decreased [Unknown]
  - Food allergy [Unknown]
  - Renal disorder [Unknown]
  - Muscle strain [Unknown]
  - Vertigo [Unknown]
  - Chest pain [Unknown]
  - Abdominal pain [Unknown]
  - Vomiting [Unknown]
  - Diarrhoea [Unknown]
  - Needle issue [Unknown]
  - Incorrect dose administered [Unknown]

NARRATIVE: CASE EVENT DATE: 20180101
